FAERS Safety Report 13307616 (Version 1)
Quarter: 2017Q1

REPORT INFORMATION
  Report Type: Spontaneous
  Country: US (occurrence: US)
  Receive Date: 20170308
  Receipt Date: 20170308
  Transmission Date: 20170428
  Serious: Yes (Other)
  Sender: FDA-Public Use
  Company Number: PHEH2017US006085

PATIENT
  Sex: Male

DRUGS (2)
  1. TRILEPTAL [Suspect]
     Active Substance: OXCARBAZEPINE
     Indication: FOETAL EXPOSURE DURING PREGNANCY
     Route: 064
  2. KEPPRA [Suspect]
     Active Substance: LEVETIRACETAM
     Indication: FOETAL EXPOSURE DURING PREGNANCY
     Route: 064

REACTIONS (11)
  - Cleft lip [Unknown]
  - Weight gain poor [Unknown]
  - Learning disorder [Unknown]
  - Therapy non-responder [Unknown]
  - Hypoacusis [Unknown]
  - Tooth development disorder [Unknown]
  - Arnold-Chiari malformation [Unknown]
  - Speech disorder [Unknown]
  - Cleft palate [Unknown]
  - Hydronephrosis [Unknown]
  - Failure to thrive [Unknown]
